FAERS Safety Report 6109779-4 (Version None)
Quarter: 2009Q1

REPORT INFORMATION
  Report Type: 
  Country: None (occurrence: None)
  Receive Date: 20090310
  Receipt Date: 20080429
  Transmission Date: 20090719
  Serious: No
  Sender: FDA-Public Use
  Company Number: A0725248A

PATIENT
  Age: 48 Year
  Sex: Female

DRUGS (1)
  1. NICORETTE [Suspect]

REACTIONS (4)
  - DYSGEUSIA [None]
  - HEADACHE [None]
  - INTENTIONAL DRUG MISUSE [None]
  - SENSITIVITY OF TEETH [None]
